FAERS Safety Report 18176273 (Version 7)
Quarter: 2020Q3

REPORT INFORMATION
  Report Type: Spontaneous
  Country: US (occurrence: US)
  Receive Date: 20200820
  Receipt Date: 20200918
  Transmission Date: 20201103
  Serious: No
  Sender: FDA-Public Use
  Company Number: US-AMGEN-USASP2020134529

PATIENT
  Age: 43 Year
  Sex: Female
  Weight: 131.8 kg

DRUGS (2)
  1. NEULASTA [Suspect]
     Active Substance: PEGFILGRASTIM
     Dosage: 6 MILLIGRAM
     Route: 065
  2. NEULASTA [Suspect]
     Active Substance: PEGFILGRASTIM
     Indication: NEUTROPENIA
     Dosage: 6 MILLIGRAM
     Route: 065
     Dates: start: 20200811

REACTIONS (4)
  - Device adhesion issue [Unknown]
  - Application site haemorrhage [Unknown]
  - Unintentional medical device removal [Unknown]
  - Device issue [Unknown]

NARRATIVE: CASE EVENT DATE: 20200811
